FAERS Safety Report 12689353 (Version 1)
Quarter: 2016Q3

REPORT INFORMATION
  Report Type: Spontaneous
  Country: US (occurrence: US)
  Receive Date: 20160826
  Receipt Date: 20160826
  Transmission Date: 20161109
  Serious: Yes (Other)
  Sender: FDA-Public Use
  Company Number: US-ASTRAZENECA-2016SE90287

PATIENT
  Sex: Male

DRUGS (1)
  1. SYMBICORT [Suspect]
     Active Substance: BUDESONIDE\FORMOTEROL FUMARATE DIHYDRATE
     Indication: ASTHMA
     Route: 055

REACTIONS (6)
  - Dyspnoea [Unknown]
  - Adverse event [Unknown]
  - Brain injury [Unknown]
  - Product use issue [Unknown]
  - Amnesia [Unknown]
  - Epilepsy [Unknown]

NARRATIVE: CASE EVENT DATE: 1990
